FAERS Safety Report 4350442-8 (Version None)
Quarter: 2004Q2

REPORT INFORMATION
  Report Type: 
  Country: None (occurrence: None)
  Receive Date: 20040427
  Receipt Date: 20040414
  Transmission Date: 20050107
  Serious: Yes (Hospitalization)
  Sender: FDA-Public Use
  Company Number: PROG00204001060

PATIENT
  Age: 43 Year
  Sex: Female
  Weight: 53.5244 kg

DRUGS (2)
  1. PROMETRIUM [Suspect]
     Indication: AMENORRHOEA
     Dosage: 200 MG, BID PO, 100 MG BID PO
     Route: 048
     Dates: start: 20020101, end: 20020101
  2. PROMETRIUM [Suspect]
     Indication: AMENORRHOEA
     Dosage: 200 MG, BID PO, 100 MG BID PO
     Route: 048
     Dates: start: 20030210, end: 20030215

REACTIONS (5)
  - ABORTION SPONTANEOUS INCOMPLETE [None]
  - COMPLICATIONS OF MATERNAL EXPOSURE TO THERAPEUTIC DRUGS [None]
  - HAEMOGLOBIN DECREASED [None]
  - MATERNAL DRUGS AFFECTING FOETUS [None]
  - SYNCOPE [None]
